FAERS Safety Report 7957051-X (Version None)
Quarter: 2011Q4

REPORT INFORMATION
  Report Type: 
  Country: None (occurrence: None)
  Receive Date: 20111130
  Receipt Date: 20111118
  Transmission Date: 20120403
  Serious: Yes (Other)
  Sender: FDA-Public Use
  Company Number: 2011AT000449

PATIENT
  Age: 44 Year
  Sex: Male

DRUGS (2)
  1. CHEMOTHERAPEUTICS NOS (PREV.) [Concomitant]
  2. TESTOSTERONE [Suspect]
     Indication: PRODUCT USED FOR UNKNOWN INDICATION

REACTIONS (4)
  - HEADACHE [None]
  - DECREASED APPETITE [None]
  - ASTHENIA [None]
  - SLEEP DISORDER [None]
